FAERS Safety Report 8407516-1 (Version None)
Quarter: 2012Q2

REPORT INFORMATION
  Report Type: 
  Country: None (occurrence: None)
  Receive Date: 20120604
  Receipt Date: 20120525
  Transmission Date: 20120825
  Serious: Yes (Hospitalization)
  Sender: FDA-Public Use
  Company Number: US-ASTRAZENECA-2012SE34075

PATIENT
  Age: 16773 Day
  Sex: Male
  Weight: 71.5 kg

DRUGS (5)
  1. ZD6474 [Suspect]
     Route: 048
     Dates: start: 20120412, end: 20120508
  2. KEPPRA [Concomitant]
  3. KEPPRA [Concomitant]
  4. M.V.I. [Concomitant]
     Dosage: DAILY
  5. ZD6474 [Suspect]
     Indication: GLIOMA
     Route: 048
     Dates: start: 20120321, end: 20120404

REACTIONS (1)
  - HAEMORRHAGE INTRACRANIAL [None]
